FAERS Safety Report 20125306 (Version 2)
Quarter: 2024Q4

REPORT INFORMATION
  Report Type: Spontaneous
  Country: US (occurrence: US)
  Receive Date: 20211129
  Receipt Date: 20241111
  Transmission Date: 20250114
  Serious: Yes (Other)
  Sender: PFIZER
  Company Number: US-PFIZER INC-202101594615

PATIENT
  Age: 72 Year
  Sex: Male

DRUGS (1)
  1. VYNDAMAX [Suspect]
     Active Substance: TAFAMIDIS
     Indication: Amyloidosis
     Dosage: TAKE 1 CAPSULE BY MOUTH DAILY
     Route: 048

REACTIONS (5)
  - Sinus node dysfunction [Unknown]
  - Cardiac amyloidosis [Unknown]
  - Cardiac disorder [Unknown]
  - Hypertension [Unknown]
  - Hyperlipidaemia [Unknown]
